FAERS Safety Report 4930070-3 (Version None)
Quarter: 2006Q1

REPORT INFORMATION
  Report Type: 
  Country: None (occurrence: None)
  Receive Date: 20060228
  Receipt Date: 20060215
  Transmission Date: 20060701
  Serious: Yes (Hospitalization, Disabling)
  Sender: FDA-Public Use
  Company Number: HQWYE832316FEB06

PATIENT
  Age: 57 Year
  Sex: Male

DRUGS (6)
  1. AMIODARONE (AMIODARONE, TABLET) [Suspect]
     Indication: VENTRICULAR TACHYCARDIA
     Dosage: 200 MG 1X PER 1 DAY ORAL
     Route: 048
     Dates: start: 20021001, end: 20060103
  2. GLYCERYL TRINITRATE (GLYCERYL TRINITRATE) [Concomitant]
  3. ASPIRIN [Concomitant]
  4. AMLODIPINE [Concomitant]
  5. CITALOPRAM (CITALOPRAM) [Concomitant]
  6. BISOPROLOL (BISOPROLOL) [Concomitant]

REACTIONS (2)
  - LOWER RESPIRATORY TRACT INFECTION [None]
  - PULMONARY FIBROSIS [None]
